FAERS Safety Report 12664132 (Version 2)
Quarter: 2016Q4

REPORT INFORMATION
  Report Type: Spontaneous
  Country: US (occurrence: US)
  Receive Date: 20160818
  Receipt Date: 20161128
  Transmission Date: 20170207
  Serious: Yes (Hospitalization, Disabling, Other)
  Sender: FDA-Public Use
  Company Number: US-AMGEN-USASP2016104921

PATIENT
  Age: 43 Year
  Sex: Female
  Weight: 61.69 kg

DRUGS (10)
  1. DARVOCET [Concomitant]
     Active Substance: ACETAMINOPHEN\PROPOXYPHENE HYDROCHLORIDE
     Dosage: UNK
  2. MORPHINE [Concomitant]
     Active Substance: MORPHINE
     Dosage: UNK
  3. DILAUDID [Concomitant]
     Active Substance: HYDROMORPHONE HYDROCHLORIDE
     Dosage: UNK
  4. IBUPROFEN. [Concomitant]
     Active Substance: IBUPROFEN
     Dosage: UNK
  5. ARIMIDEX [Concomitant]
     Active Substance: ANASTROZOLE
     Indication: BREAST CANCER
     Dosage: 1 MG, AFTER CHEMO
     Route: 065
     Dates: start: 2008, end: 201405
  6. ERYTHROMYCIN. [Concomitant]
     Active Substance: ERYTHROMYCIN
     Dosage: UNK
  7. NEULASTA [Suspect]
     Active Substance: PEGFILGRASTIM
     Indication: PRODUCT USED FOR UNKNOWN INDICATION
     Dosage: UNK, AFTER CHEMO
     Route: 065
  8. PERCOCET [Concomitant]
     Active Substance: ACETAMINOPHEN\OXYCODONE HYDROCHLORIDE
     Dosage: UNK
  9. TYLENOL [Concomitant]
     Active Substance: ACETAMINOPHEN
     Dosage: UNK
  10. TETRACYCLINE [Concomitant]
     Active Substance: TETRACYCLINE
     Dosage: UNK

REACTIONS (20)
  - Neuropathy peripheral [Not Recovered/Not Resolved]
  - White blood cell count abnormal [Unknown]
  - Hospitalisation [Recovered/Resolved]
  - Lymphoedema [Not Recovered/Not Resolved]
  - Fatigue [Recovered/Resolved]
  - Breast prosthesis user [Unknown]
  - Infection [Recovered/Resolved]
  - Hypersensitivity [Unknown]
  - Vomiting [Recovered/Resolved]
  - Nausea [Recovered/Resolved]
  - Gait disturbance [Unknown]
  - Swelling [Unknown]
  - Breast discharge [Unknown]
  - Asthenia [Recovered/Resolved]
  - Breast cancer metastatic [Not Recovered/Not Resolved]
  - Unevaluable event [Unknown]
  - Somnolence [Unknown]
  - Disability [Not Recovered/Not Resolved]
  - Walking disability [Recovered/Resolved]
  - Bone pain [Recovered/Resolved]

NARRATIVE: CASE EVENT DATE: 2007
